FAERS Safety Report 16106330 (Version 1)
Quarter: 2019Q1

REPORT INFORMATION
  Report Type: Spontaneous
  Country: US (occurrence: US)
  Receive Date: 20190220
  Receipt Date: 20190220
  Transmission Date: 20190418
  Serious: No
  Sender: FDA-Public Use
  Company Number: None

PATIENT
  Age: 82 Year
  Sex: Male
  Weight: 90.72 kg

DRUGS (6)
  1. PROLIA [Suspect]
     Active Substance: DENOSUMAB
     Indication: PROSTATE CANCER
     Dosage: ?          OTHER FREQUENCY:6 MONTH AS DIR ;?
     Route: 058
     Dates: start: 201802
  2. ELIGARD [Suspect]
     Active Substance: LEUPROLIDE ACETATE
     Indication: BONE DENSITY ABNORMAL
     Dosage: OTHER FREQUENCY:6 MONTHS AS DIRECT;?
     Route: 058
     Dates: start: 201704
  3. PROLIA [Suspect]
     Active Substance: DENOSUMAB
     Indication: FUNGAL INFECTION
     Dosage: ?          OTHER FREQUENCY:6 MONTH AS DIR ;?
     Route: 058
     Dates: start: 201802
  4. PROLIA [Suspect]
     Active Substance: DENOSUMAB
     Indication: BONE DENSITY ABNORMAL
     Dosage: ?          OTHER FREQUENCY:6 MONTH AS DIR ;?
     Route: 058
     Dates: start: 201802
  5. ELIGARD [Suspect]
     Active Substance: LEUPROLIDE ACETATE
     Indication: PROSTATE CANCER
     Dosage: OTHER FREQUENCY:6 MONTHS AS DIRECT;?
     Route: 058
     Dates: start: 201704
  6. ELIGARD [Suspect]
     Active Substance: LEUPROLIDE ACETATE
     Indication: SENILE OSTEOPOROSIS
     Dosage: OTHER FREQUENCY:6 MONTHS AS DIRECT;?
     Route: 058
     Dates: start: 201704

REACTIONS (1)
  - Cardiac pacemaker insertion [None]
